FAERS Safety Report 7429572-X (Version None)
Quarter: 2011Q2

REPORT INFORMATION
  Report Type: 
  Country: None (occurrence: None)
  Receive Date: 20110421
  Receipt Date: 20110411
  Transmission Date: 20111010
  Serious: Yes (Other)
  Sender: FDA-Public Use
  Company Number: A0923687A

PATIENT
  Sex: Female
  Weight: 76.4 kg

DRUGS (9)
  1. LAPATINIB [Suspect]
     Indication: BREAST CANCER METASTATIC
     Dosage: 1000MG PER DAY
     Route: 048
     Dates: start: 20100628, end: 20110315
  2. VITAMIN D CALCIUM [Concomitant]
     Indication: OSTEOPOROSIS
     Dates: start: 20100518
  3. ACETAMINOPHEN [Concomitant]
     Indication: ARTHRITIS
     Dates: start: 20040101
  4. BROMAZEPAM [Concomitant]
     Indication: INSOMNIA
     Dates: start: 20100401
  5. SENOKOT [Concomitant]
     Indication: CONSTIPATION
     Dates: start: 20100301
  6. PANTALOC [Concomitant]
     Indication: DYSPEPSIA
     Dates: start: 20020101
  7. NASONEX [Concomitant]
     Indication: RHINITIS
     Dates: start: 20080101
  8. XANAX [Concomitant]
     Indication: INSOMNIA
     Dates: start: 20100719
  9. MOTILIUM [Concomitant]
     Indication: DYSPEPSIA
     Dates: start: 20101019

REACTIONS (3)
  - ALANINE AMINOTRANSFERASE INCREASED [None]
  - PRURITUS [None]
  - ASPARTATE AMINOTRANSFERASE INCREASED [None]
